FAERS Safety Report 22537016 (Version 2)
Quarter: 2023Q2

REPORT INFORMATION
  Report Type: Spontaneous
  Country: US (occurrence: US)
  Receive Date: 20230608
  Receipt Date: 20230619
  Transmission Date: 20230722
  Serious: Yes (Other)
  Sender: FDA-Public Use
  Company Number: US-TEVA-2023-US-2893296

PATIENT
  Age: 55 Year
  Sex: Female

DRUGS (6)
  1. ALPRAZOLAM [Suspect]
     Active Substance: ALPRAZOLAM
     Indication: Generalised anxiety disorder
     Route: 065
     Dates: start: 2008
  2. ALPRAZOLAM [Suspect]
     Active Substance: ALPRAZOLAM
     Dosage: THREE TIMES A DAY
     Route: 065
  3. DIAZEPAM [Suspect]
     Active Substance: DIAZEPAM
     Indication: Pelvic pain
     Route: 067
     Dates: end: 20150717
  4. IBUPROFEN [Concomitant]
     Active Substance: IBUPROFEN
     Indication: Back pain
     Dosage: AS NEEDED
     Route: 065
     Dates: start: 2008
  5. Diltiazem-hydrochloride [Concomitant]
     Indication: Atrial fibrillation
     Dosage: 180 MILLIGRAM DAILY;
     Route: 065
  6. GABAPENTIN [Concomitant]
     Active Substance: GABAPENTIN
     Indication: Pain
     Dosage: 1800 MILLIGRAM DAILY; THREE TIMES A DAY
     Route: 065

REACTIONS (16)
  - Drug dependence [Unknown]
  - Dependence [Unknown]
  - Intentional product misuse [Unknown]
  - Drug withdrawal syndrome [Not Recovered/Not Resolved]
  - Insomnia [Unknown]
  - Night sweats [Unknown]
  - Tinnitus [Unknown]
  - Dizziness [Unknown]
  - Paraesthesia [Unknown]
  - Malaise [Unknown]
  - Fatigue [Unknown]
  - Hyperacusis [Unknown]
  - Myalgia [Unknown]
  - Pain [Unknown]
  - Musculoskeletal stiffness [Unknown]
  - Exercise lack of [Unknown]
